FAERS Safety Report 5954559-3 (Version None)
Quarter: 2008Q4

REPORT INFORMATION
  Report Type: 
  Country: None (occurrence: None)
  Receive Date: 20081117
  Receipt Date: 20081110
  Transmission Date: 20090506
  Serious: Yes (Death, Hospitalization)
  Sender: FDA-Public Use
  Company Number: SE-JNJFOC-20081102416

PATIENT
  Age: 62 Year
  Sex: Male

DRUGS (9)
  1. REMICADE [Suspect]
     Indication: COLITIS ULCERATIVE
     Route: 042
  2. AMLODIPINE [Concomitant]
  3. METFORMIN HCL [Concomitant]
  4. METOPROLOL TARTRATE [Concomitant]
  5. RAMIPRIL [Concomitant]
  6. PLAVIX [Concomitant]
  7. SIMVASTATIN [Concomitant]
  8. PREDNISOLONE [Concomitant]
  9. NOVOLOG MIX 70/30 [Concomitant]
     Route: 050

REACTIONS (2)
  - CARDIAC FAILURE [None]
  - MYOCARDIAL ISCHAEMIA [None]
